FAERS Safety Report 7374652-0 (Version None)
Quarter: 2011Q1

REPORT INFORMATION
  Report Type: 
  Country: None (occurrence: None)
  Receive Date: 20110325
  Receipt Date: 20100616
  Transmission Date: 20110831
  Serious: No
  Sender: FDA-Public Use
  Company Number: US-MYLANLABS-2010S1010918

PATIENT
  Age: 55 Year
  Sex: Female
  Weight: 54.43 kg

DRUGS (11)
  1. MARIJUANA [Concomitant]
  2. ESTRADIOL [Concomitant]
  3. CYMBALTA [Concomitant]
  4. NEXIUM [Concomitant]
  5. FENTANYL-100 [Suspect]
     Dosage: CHANGED Q72H
     Route: 062
     Dates: start: 20100615
  6. ZOFRAN [Concomitant]
  7. IMITREX [Concomitant]
  8. DESIPRAMIDE HCL [Concomitant]
  9. FENTANYL-100 [Suspect]
     Indication: FIBROMYALGIA
     Dosage: CHANGED Q72H
     Route: 062
     Dates: start: 20080101, end: 20100507
  10. HYDROXYZINE [Concomitant]
  11. PROPRANOLOL [Concomitant]

REACTIONS (3)
  - FALSE NEGATIVE INVESTIGATION RESULT [None]
  - APPLICATION SITE IRRITATION [None]
  - URINE AMPHETAMINE POSITIVE [None]
